FAERS Safety Report 5772273-4 (Version None)
Quarter: 2008Q2

REPORT INFORMATION
  Report Type: 
  Country: None (occurrence: None)
  Receive Date: 20080613
  Receipt Date: 20080604
  Transmission Date: 20081010
  Serious: Yes (Hospitalization, Other)
  Sender: FDA-Public Use
  Company Number: PHHY2008JP08611

PATIENT
  Sex: Female
  Weight: 51 kg

DRUGS (4)
  1. DIOVAN [Suspect]
     Indication: HYPERTENSION
     Dosage: 80 MG, UNK
     Route: 048
     Dates: start: 20080408, end: 20080420
  2. CRESTOR [Suspect]
     Indication: HYPERCHOLESTEROLAEMIA
     Dosage: 1 DF, UNK
     Route: 048
     Dates: start: 20080408, end: 20080420
  3. LOXONIN [Suspect]
     Indication: PYREXIA
     Dosage: 2 DF, UNK
     Route: 048
     Dates: start: 20080420, end: 20080423
  4. FLOMOX [Suspect]
     Indication: PYREXIA
     Dosage: 2 DF, UNK
     Route: 048
     Dates: start: 20080420, end: 20080423

REACTIONS (19)
  - ALANINE AMINOTRANSFERASE INCREASED [None]
  - ASPARTATE AMINOTRANSFERASE INCREASED [None]
  - BILIRUBIN CONJUGATED INCREASED [None]
  - BLOOD ALKALINE PHOSPHATASE INCREASED [None]
  - BLOOD BILIRUBIN INCREASED [None]
  - BLOOD CREATININE INCREASED [None]
  - BLOOD LACTATE DEHYDROGENASE INCREASED [None]
  - BLOOD SODIUM DECREASED [None]
  - BLOOD UREA INCREASED [None]
  - C-REACTIVE PROTEIN INCREASED [None]
  - DEHYDRATION [None]
  - GAMMA-GLUTAMYLTRANSFERASE INCREASED [None]
  - LIVER DISORDER [None]
  - LYMPHOCYTE STIMULATION TEST POSITIVE [None]
  - NAUSEA [None]
  - PROTEIN URINE PRESENT [None]
  - PYREXIA [None]
  - RENAL DISORDER [None]
  - WHITE BLOOD CELL COUNT DECREASED [None]
